FAERS Safety Report 15440860 (Version 1)
Quarter: 2018Q3

REPORT INFORMATION
  Report Type: Spontaneous
  Country: JP (occurrence: JP)
  Receive Date: 20180928
  Receipt Date: 20180928
  Transmission Date: 20181010
  Serious: Yes (Hospitalization, Other)
  Sender: FDA-Public Use
  Company Number: JP-PFIZER INC-2018381737

PATIENT
  Age: 72 Year
  Sex: Male

DRUGS (1)
  1. RHEUMATREX [Suspect]
     Active Substance: METHOTREXATE SODIUM
     Indication: RHEUMATOID ARTHRITIS
     Dosage: 12 MG WEEKLY, 6 TIMES WEEKLY IN THE MORNING AND EVENING OF SATURDAY, SUNDAY, MONDAY
     Route: 048
     Dates: start: 201511, end: 20180915

REACTIONS (3)
  - Bone marrow failure [Recovered/Resolved]
  - Ascites [Recovered/Resolved]
  - Product use issue [Unknown]

NARRATIVE: CASE EVENT DATE: 201511
